FAERS Safety Report 14015043 (Version 3)
Quarter: 2018Q2

REPORT INFORMATION
  Report Type: Report from Study
  Country: BR (occurrence: BR)
  Receive Date: 20170927
  Receipt Date: 20180418
  Transmission Date: 20180711
  Serious: Yes (Death, Other)
  Sender: FDA-Public Use
  Company Number: BR-ROCHE-1930037

PATIENT
  Age: 66 Year
  Sex: Female
  Weight: 53 kg

DRUGS (1)
  1. AVASTIN [Suspect]
     Active Substance: BEVACIZUMAB
     Indication: COLORECTAL CANCER
     Dosage: LATEST INFUSION ON 22/AUG/2017
     Route: 065

REACTIONS (8)
  - Death [Fatal]
  - Tooth infection [Recovered/Resolved]
  - Rash [Recovering/Resolving]
  - Aphthous ulcer [Unknown]
  - Complication associated with device [Unknown]
  - Pain [Unknown]
  - Fatigue [Unknown]
  - Genital rash [Recovering/Resolving]

NARRATIVE: CASE EVENT DATE: 20180107
